FAERS Safety Report 6490088-9 (Version None)
Quarter: 2009Q4

REPORT INFORMATION
  Report Type: 
  Country: None (occurrence: None)
  Receive Date: 20091211
  Receipt Date: 20090202
  Transmission Date: 20100525
  Serious: No
  Sender: FDA-Public Use
  Company Number: A0767186A

PATIENT
  Sex: Female

DRUGS (1)
  1. FLOVENT [Suspect]
     Indication: DRUG USE FOR UNKNOWN INDICATION
     Dosage: 110MCG UNKNOWN
     Route: 065

REACTIONS (3)
  - INCORRECT DOSE ADMINISTERED [None]
  - NO ADVERSE EVENT [None]
  - OVERDOSE [None]
